FAERS Safety Report 8229391-0 (Version None)
Quarter: 2012Q1

REPORT INFORMATION
  Report Type: 
  Country: None (occurrence: None)
  Receive Date: 20120322
  Receipt Date: 20120312
  Transmission Date: 20120608
  Serious: Yes (Other)
  Sender: FDA-Public Use
  Company Number: AU-JNJFOC-20120306755

PATIENT
  Age: 63 Year
  Sex: Female

DRUGS (5)
  1. COVERSYL PLUS [Concomitant]
  2. XARELTO [Suspect]
     Indication: THROMBOSIS PROPHYLAXIS
     Route: 048
     Dates: start: 20120220
  3. XARELTO [Suspect]
     Indication: PATELLA REPLACEMENT
     Route: 048
     Dates: start: 20120220
  4. CRESTOR [Concomitant]
  5. CELEBREX [Concomitant]

REACTIONS (3)
  - PULMONARY EMBOLISM [None]
  - DEEP VEIN THROMBOSIS [None]
  - DYSPNOEA [None]
